FAERS Safety Report 4829231-3 (Version None)
Quarter: 2005Q4

REPORT INFORMATION
  Report Type: 
  Country: None (occurrence: None)
  Receive Date: 20051028
  Receipt Date: 20050917
  Transmission Date: 20060501
  Serious: No
  Sender: FDA-Public Use
  Company Number: COT_0216_2005

PATIENT
  Age: 62 Year
  Sex: Male
  Weight: 83.9154 kg

DRUGS (7)
  1. VENTAVIS [Suspect]
     Indication: PULMONARY HYPERTENSION
     Dosage: 5 MCG 65XD IH
     Route: 055
     Dates: start: 20050912
  2. ZOCOR [Concomitant]
  3. COUMADIN [Concomitant]
  4. TRACLEER [Concomitant]
  5. NEXIUM [Concomitant]
  6. ATIVAN [Concomitant]
  7. TOPROL-XL [Concomitant]

REACTIONS (2)
  - COUGH [None]
  - PYREXIA [None]
